FAERS Safety Report 18992136 (Version 1)
Quarter: 2021Q1

REPORT INFORMATION
  Report Type: Spontaneous
  Country: CA (occurrence: CA)
  Receive Date: 20210310
  Receipt Date: 20210310
  Transmission Date: 20210420
  Serious: Yes (Hospitalization)
  Sender: FDA-Public Use
  Company Number: CA-ROCHE-2783384

PATIENT
  Age: 52 Year
  Sex: Female

DRUGS (23)
  1. CLONAZEPAM. [Suspect]
     Active Substance: CLONAZEPAM
     Indication: HYPOMANIA
     Route: 065
  2. QUETIAPINE FUMARATE. [Suspect]
     Active Substance: QUETIAPINE FUMARATE
     Indication: PSYCHOTIC DISORDER
     Route: 065
  3. TEGRETOL [Suspect]
     Active Substance: CARBAMAZEPINE
     Indication: HYPOMANIA
     Route: 065
  4. LACTULOSE. [Concomitant]
     Active Substance: LACTULOSE
  5. ATOVAQUONE;PROGUANIL HYDROCHLORIDE [Concomitant]
  6. BISACODYL. [Concomitant]
     Active Substance: BISACODYL
  7. APTIVUS [Suspect]
     Active Substance: TIPRANAVIR
     Indication: HIV INFECTION
     Route: 065
  8. RISPERIDONE. [Suspect]
     Active Substance: RISPERIDONE
     Indication: PSYCHOTIC DISORDER
     Route: 065
  9. NYSTATIN. [Concomitant]
     Active Substance: NYSTATIN
  10. PROCYCLIDINE HCL [Concomitant]
     Active Substance: PROCYCLIDINE HYDROCHLORIDE
  11. ABACAVIR. [Concomitant]
     Active Substance: ABACAVIR
  12. IMODIUM [Concomitant]
     Active Substance: LOPERAMIDE HYDROCHLORIDE
  13. LITHIUM. [Concomitant]
     Active Substance: LITHIUM
  14. KALETRA [Concomitant]
     Active Substance: LOPINAVIR\RITONAVIR
  15. TRAZODONE [Suspect]
     Active Substance: TRAZODONE HYDROCHLORIDE
     Indication: DEPRESSION
     Route: 065
  16. BENADRYL [Concomitant]
     Active Substance: DIPHENHYDRAMINE HYDROCHLORIDE
  17. CHLORAL HYDRATE [Concomitant]
     Active Substance: CHLORAL HYDRATE
  18. ENFUVIRTIDE. [Concomitant]
     Active Substance: ENFUVIRTIDE
  19. DIAZEPAM. [Suspect]
     Active Substance: DIAZEPAM
     Indication: DEPRESSION
     Route: 065
  20. ACETAMINOPHEN. [Suspect]
     Active Substance: ACETAMINOPHEN
     Indication: PAIN IN EXTREMITY
     Route: 065
  21. OLANZAPINE. [Suspect]
     Active Substance: OLANZAPINE
     Indication: PSYCHOTIC DISORDER
     Route: 065
  22. CALCIUM CARBONATE. [Concomitant]
     Active Substance: CALCIUM CARBONATE
  23. 3TC [Concomitant]
     Active Substance: LAMIVUDINE

REACTIONS (12)
  - Blood bilirubin increased [Unknown]
  - Vomiting [Unknown]
  - Jaundice cholestatic [Unknown]
  - Hepatic enzyme increased [Unknown]
  - Hepatotoxicity [Unknown]
  - Nausea [Unknown]
  - Psychotic disorder [Unknown]
  - Cholelithiasis [Unknown]
  - Condition aggravated [Unknown]
  - Hypomania [Unknown]
  - Pneumonia [Unknown]
  - Schizophrenia [Unknown]
